FAERS Safety Report 21326236 (Version 1)
Quarter: 2022Q3

REPORT INFORMATION
  Report Type: Spontaneous
  Country: US (occurrence: US)
  Receive Date: 20220913
  Receipt Date: 20220913
  Transmission Date: 20221026
  Serious: No
  Sender: FDA-Public Use
  Company Number: US-PRINSTON PHARMACEUTICAL INC.-2022PRN00015

PATIENT
  Sex: Male

DRUGS (1)
  1. ESCITALOPRAM [Suspect]
     Active Substance: ESCITALOPRAM OXALATE

REACTIONS (7)
  - Feeling hot [Unknown]
  - Discomfort [Unknown]
  - Drug ineffective [Unknown]
  - Abnormal dreams [Unknown]
  - Feeling abnormal [Unknown]
  - Product dose omission issue [Unknown]
  - Unevaluable event [Unknown]
